FAERS Safety Report 4470322-7 (Version None)
Quarter: 2004Q3

REPORT INFORMATION
  Report Type: 
  Country: None (occurrence: None)
  Receive Date: 20040910
  Receipt Date: 20040624
  Transmission Date: 20050211
  Serious: No
  Sender: FDA-Public Use
  Company Number: 2004-00124

PATIENT
  Age: 71 Year
  Sex: Male
  Weight: 102.5 kg

DRUGS (3)
  1. VELCADE [Suspect]
     Indication: MANTLE CELL LYMPHOMA
     Dosage: INTRAVENOUS
     Route: 042
     Dates: start: 20040601
  2. ZOLOFT [Concomitant]
  3. AMBIEN [Concomitant]

REACTIONS (4)
  - CHILLS [None]
  - DIZZINESS [None]
  - NEOPLASM PROGRESSION [None]
  - PYREXIA [None]
